FAERS Safety Report 20126406 (Version 1)
Quarter: 2021Q4

REPORT INFORMATION
  Report Type: Spontaneous
  Country: NL (occurrence: NL)
  Receive Date: 20211129
  Receipt Date: 20211129
  Transmission Date: 20220303
  Serious: Yes (Other)
  Sender: FDA-Public Use
  Company Number: NL-MLMSERVICE-20211109-3207335-1

PATIENT
  Age: 35 Year
  Sex: Male
  Weight: 124 kg

DRUGS (1)
  1. TOPAMAX [Suspect]
     Active Substance: TOPIRAMATE
     Indication: Epilepsy
     Route: 050

REACTIONS (4)
  - Overdose [Recovered/Resolved]
  - Product prescribing error [Recovered/Resolved]
  - Incorrect route of product administration [Unknown]
  - Off label use [Unknown]
